FAERS Safety Report 8023038-4 (Version None)
Quarter: 2012Q1

REPORT INFORMATION
  Report Type: 
  Country: None (occurrence: None)
  Receive Date: 20120104
  Receipt Date: 20111227
  Transmission Date: 20120608
  Serious: Yes (Hospitalization, Other)
  Sender: FDA-Public Use
  Company Number: US-BAYER-2011-033910

PATIENT
  Age: 29 Year
  Sex: Female
  Weight: 77.098 kg

DRUGS (9)
  1. ALPRAZOLAM [Concomitant]
     Dosage: 1 MG, UNK
  2. LAMOTRIGINE [Concomitant]
     Dosage: 200 MG, UNK
  3. COUMADIN [Concomitant]
     Indication: PULMONARY EMBOLISM
  4. ADDERALL XR 10 [Concomitant]
     Dosage: 30 MG, UNK
  5. CIPROFLOXACIN [Concomitant]
     Dosage: 500 MG, UNK
  6. YAZ [Suspect]
     Indication: PREMENSTRUAL SYNDROME
     Dosage: UNK
     Dates: start: 20090101, end: 20090101
  7. GEODON [Concomitant]
     Dosage: 80 MG, UNK
  8. METRONIDAZOLE [Concomitant]
     Route: 067
  9. PROPRANOLOL [Concomitant]
     Dosage: 40 MG, UNK

REACTIONS (6)
  - PULMONARY EMBOLISM [None]
  - GALLBLADDER INJURY [None]
  - INJURY [None]
  - PAIN [None]
  - DEEP VEIN THROMBOSIS [None]
  - DEPRESSION [None]
